FAERS Safety Report 6410948-4 (Version None)
Quarter: 2009Q4

REPORT INFORMATION
  Report Type: 
  Country: None (occurrence: None)
  Receive Date: 20091022
  Receipt Date: 20091013
  Transmission Date: 20100525
  Serious: Yes (Hospitalization)
  Sender: FDA-Public Use
  Company Number: PHHO2009US08113

PATIENT
  Sex: Male

DRUGS (11)
  1. RAD 666 RAD+TAB [Suspect]
     Indication: HEAD AND NECK CANCER
     Dosage: 5 MG EVERY OTHER DAY
     Route: 048
     Dates: start: 20090511, end: 20090619
  2. CISPLATIN [Concomitant]
     Indication: HEAD AND NECK CANCER
     Dosage: 65MG
     Route: 042
     Dates: start: 20090511, end: 20090616
  3. LYRICA [Concomitant]
  4. OXYCODONE [Concomitant]
  5. SENNA [Concomitant]
  6. COLACE [Concomitant]
  7. LIDOCAINE [Concomitant]
  8. EMEND [Concomitant]
  9. GUAIFENESIN [Concomitant]
  10. FENTANYL-100 [Concomitant]
  11. MAGIC MOUTHWASH [Concomitant]

REACTIONS (6)
  - COUGH [None]
  - HAEMOPTYSIS [None]
  - LYMPHOCYTE COUNT DECREASED [None]
  - NEUTROPHIL COUNT INCREASED [None]
  - PHARYNGEAL HAEMORRHAGE [None]
  - PNEUMONIA [None]
